FAERS Safety Report 5360159-9 (Version None)
Quarter: 2007Q2

REPORT INFORMATION
  Report Type: 
  Country: None (occurrence: None)
  Receive Date: 20070618
  Receipt Date: 20070605
  Transmission Date: 20071010
  Serious: Yes (Hospitalization, Other)
  Sender: FDA-Public Use
  Company Number: PHBS2007JP08645

PATIENT
  Age: 80 Year
  Sex: Male

DRUGS (3)
  1. NEORAL [Suspect]
     Indication: PEMPHIGOID
     Dosage: 2 ML/DAY
     Route: 048
     Dates: start: 20050501, end: 20070521
  2. PREDNISOLONE [Concomitant]
  3. URSO 250 [Concomitant]

REACTIONS (2)
  - CHOLANGITIS [None]
  - WHITE BLOOD CELL COUNT DECREASED [None]
